FAERS Safety Report 8156427-8 (Version None)
Quarter: 2012Q1

REPORT INFORMATION
  Report Type: 
  Country: None (occurrence: None)
  Receive Date: 20120222
  Receipt Date: 20120217
  Transmission Date: 20120608
  Serious: Yes (Other)
  Sender: FDA-Public Use
  Company Number: JP-SANOFI-AVENTIS-2011SA083151

PATIENT
  Age: 68 Year
  Sex: Male

DRUGS (7)
  1. CISPLATIN [Suspect]
     Dosage: RECEIVED 7 CYCLES AT LOW DOSES
     Route: 065
     Dates: start: 20090501
  2. FLUOROURACIL [Suspect]
     Dosage: DAY 1-5, RECEIVED 8 CYCLES
     Route: 065
     Dates: start: 20100201
  3. FLUOROURACIL [Suspect]
     Dosage: RECEIVED 7 CYCLES AT LOW DOSES
     Route: 065
     Dates: start: 20090501
  4. TAXOTERE [Suspect]
     Dosage: RECEIVED 2 CYCLES
     Route: 065
     Dates: start: 20090501
  5. PACLITAXEL [Concomitant]
     Dosage: 3 CYCLES
     Dates: start: 20090501
  6. NEDAPLATIN [Concomitant]
     Dosage: DAY 1, RECEIVED 8 CYCLES
     Dates: start: 20100201
  7. ALL OTHER THERAPEUTIC PRODUCTS [Concomitant]
     Indication: PLEURAL EFFUSION
     Route: 038
     Dates: start: 20100101

REACTIONS (5)
  - SOMNOLENCE [None]
  - INTERSTITIAL LUNG DISEASE [None]
  - HYPERAMMONAEMIA [None]
  - COMA HEPATIC [None]
  - CONSTIPATION [None]
